FAERS Safety Report 9385970 (Version 2)
Quarter: 2013Q3

REPORT INFORMATION
  Report Type: Report from Study
  Country: DE (occurrence: DE)
  Receive Date: 20130705
  Receipt Date: 20130801
  Transmission Date: 20140515
  Serious: Yes (Hospitalization)
  Sender: FDA-Public Use
  Company Number: DE-ABBOTT-13P-062-1112758-00

PATIENT
  Age: 67 Year
  Sex: Female
  Weight: 85 kg

DRUGS (8)
  1. LYRICA [Concomitant]
     Indication: SPINAL OSTEOARTHRITIS
  2. OMEPRAZOLE [Concomitant]
     Indication: GASTROOESOPHAGEAL REFLUX DISEASE
     Route: 048
     Dates: start: 2002
  3. CELEBREX [Concomitant]
     Indication: PRODUCT USED FOR UNKNOWN INDICATION
     Route: 048
     Dates: start: 2005
  4. HUMIRA [Suspect]
     Indication: RHEUMATOID ARTHRITIS
     Route: 058
     Dates: start: 200609, end: 20130308
  5. HUMIRA [Suspect]
     Route: 058
     Dates: start: 20130426
  6. LEFLUNOMIDE [Concomitant]
     Indication: RHEUMATOID ARTHRITIS
  7. BISOPROLOL [Concomitant]
     Indication: HYPERTENSION
  8. APROVEL [Concomitant]
     Indication: HYPERTENSION

REACTIONS (1)
  - Arthroscopy [Recovered/Resolved]
